FAERS Safety Report 12979809 (Version 2)
Quarter: 2016Q4

REPORT INFORMATION
  Report Type: Spontaneous
  Country: US (occurrence: US)
  Receive Date: 20161128
  Receipt Date: 20161207
  Transmission Date: 20170207
  Serious: Yes (Hospitalization, Other)
  Sender: FDA-Public Use
  Company Number: US-INDIVIOR LIMITED-INDV-096727-2016

PATIENT

DRUGS (2)
  1. BUPRENORPHINE/NALOXONE BRAND UNSPECIFIED [Suspect]
     Active Substance: BUPRENORPHINE\NALOXONE
     Indication: DRUG DEPENDENCE
     Dosage: 10MG MEDIAN DOSE, UNK
     Route: 065
  2. BUPRENORPHINE. [Suspect]
     Active Substance: BUPRENORPHINE
     Indication: DRUG DEPENDENCE
     Dosage: 10MG MEDIAN DOSE, UNK
     Route: 065

REACTIONS (1)
  - Drug-induced liver injury [Unknown]
